FAERS Safety Report 22275874 (Version 1)
Quarter: 2023Q2

REPORT INFORMATION
  Report Type: Spontaneous
  Country: RU (occurrence: RU)
  Receive Date: 20230502
  Receipt Date: 20230502
  Transmission Date: 20230721
  Serious: Yes (Other)
  Sender: FDA-Public Use
  Company Number: RU-KOREA IPSEN Pharma-2023-09375

PATIENT
  Age: 40 Year
  Sex: Female

DRUGS (2)
  1. DYSPORT [Suspect]
     Active Substance: ABOBOTULINUMTOXINA
     Indication: Hyperhidrosis
     Dosage: DOSE 700-800 UNIT ADMINISTERED
     Route: 065
     Dates: start: 2009
  2. DYSPORT [Suspect]
     Active Substance: ABOBOTULINUMTOXINA
     Indication: Torticollis
     Route: 065

REACTIONS (2)
  - Generalised oedema [Unknown]
  - Swelling [Unknown]

NARRATIVE: CASE EVENT DATE: 20090101
